FAERS Safety Report 14749756 (Version 1)
Quarter: 2018Q2

REPORT INFORMATION
  Report Type: Report from Study
  Country: None (occurrence: CA)
  Receive Date: 20180412
  Receipt Date: 20180412
  Transmission Date: 20180711
  Serious: Yes (Other)
  Sender: FDA-Public Use
  Company Number: CA-ABBVIE-18K-028-2316490-00

PATIENT
  Sex: Female

DRUGS (3)
  1. MELOXICAM. [Suspect]
     Active Substance: MELOXICAM
     Indication: PAIN
     Route: 065
  2. MELOXICAM. [Suspect]
     Active Substance: MELOXICAM
     Route: 065
  3. HUMIRA [Suspect]
     Active Substance: ADALIMUMAB
     Indication: ANKYLOSING SPONDYLITIS
     Route: 058
     Dates: start: 2001

REACTIONS (7)
  - Foot deformity [Recovered/Resolved]
  - Foot deformity [Not Recovered/Not Resolved]
  - Sensitivity to weather change [Unknown]
  - Abdominal discomfort [Unknown]
  - Complication associated with device [Unknown]
  - Drug effect variable [Not Recovered/Not Resolved]
  - Pain [Recovering/Resolving]

NARRATIVE: CASE EVENT DATE: 2016
